FAERS Safety Report 8802524 (Version 1)
Quarter: 2012Q4

REPORT INFORMATION
  Report Type: 
  Country: PH (occurrence: PH)
  Receive Date: 20120921
  Receipt Date: 20120921
  Transmission Date: 20130627
  Serious: Yes (Death, Other)
  Sender: FDA-Public Use
  Company Number: PHHY2004PH005334

PATIENT
  Age: 58 Year
  Sex: Female
  Weight: 58 kg

DRUGS (1)
  1. GLIVEC [Suspect]
     Indication: CHRONIC MYELOID LEUKAEMIA
     Dosage: 400mg daily
     Dates: start: 20040217

REACTIONS (5)
  - Death [Fatal]
  - Thrombocytopenia [Unknown]
  - Temporomandibular joint syndrome [Unknown]
  - Neutropenia [Unknown]
  - Anaemia [Unknown]
